FAERS Safety Report 4332917-0 (Version None)
Quarter: 2004Q2

REPORT INFORMATION
  Report Type: 
  Country: None (occurrence: None)
  Receive Date: 20040406
  Receipt Date: 20040312
  Transmission Date: 20050107
  Serious: Yes (Hospitalization)
  Sender: FDA-Public Use
  Company Number: 200411302FR

PATIENT
  Age: 69 Year
  Sex: Male

DRUGS (11)
  1. CEFOTAXIME SODIUM [Suspect]
     Dates: start: 20030119, end: 20030123
  2. OFLOXACIN [Suspect]
     Dates: start: 20030118
  3. PREDNISOLONE SODIUM PHOSPHATE [Suspect]
     Dates: start: 20021206, end: 20030225
  4. TRANXENE [Suspect]
     Route: 048
     Dates: start: 20021206, end: 20030130
  5. DEPAKINE CHRONO [Suspect]
     Indication: BRAIN NEOPLASM MALIGNANT
     Route: 048
     Dates: start: 20021206, end: 20030130
  6. PROCARBAZINE HYDROCHLORIDE [Suspect]
     Indication: BRAIN NEOPLASM MALIGNANT
     Route: 048
     Dates: start: 20030103, end: 20030116
  7. LOMUSTINE [Suspect]
     Indication: BRAIN NEOPLASM MALIGNANT
     Dates: start: 20021227, end: 20030124
  8. VINCRISTINE SULFATE [Suspect]
     Indication: BRAIN NEOPLASM MALIGNANT
     Dates: start: 20030103, end: 20030124
  9. ACETAMINOPHEN AND CODEINE PHOSPHATE [Suspect]
     Route: 048
     Dates: start: 20021206, end: 20030130
  10. POTASSIUM CHLORIDE [Concomitant]
     Dates: start: 20021206
  11. OMEPRAZOLE [Concomitant]
     Dates: start: 20021206

REACTIONS (10)
  - ADRENAL CORTICAL INSUFFICIENCY [None]
  - APLASIA [None]
  - CHILLS [None]
  - CHOLANGITIS [None]
  - CIRCULATORY COLLAPSE [None]
  - HEPATITIS CHOLESTATIC [None]
  - HEPATOTOXICITY [None]
  - HYPERTHERMIA [None]
  - PURPURA [None]
  - TOXIC EPIDERMAL NECROLYSIS [None]
